FAERS Safety Report 15854386 (Version 3)
Quarter: 2019Q1

REPORT INFORMATION
  Report Type: Spontaneous
  Country: US (occurrence: US)
  Receive Date: 20190122
  Receipt Date: 20190325
  Transmission Date: 20190417
  Serious: Yes (Death, Hospitalization, Other)
  Sender: FDA-Public Use
  Company Number: US-BAYER-2019-010410

PATIENT
  Age: 42 Year
  Sex: Male
  Weight: 59.68 kg

DRUGS (37)
  1. ALTEPLASE RECOMBINANT [Concomitant]
     Active Substance: ALTEPLASE
     Dosage: 2 MG, PRN
     Route: 042
  2. DEXTROSE. [Concomitant]
     Active Substance: DEXTROSE
     Dosage: 250 ML
     Route: 042
  3. ONDANSETRON HYDROCHLORIDE. [Concomitant]
     Active Substance: ONDANSETRON HYDROCHLORIDE
     Dosage: 8 MG, Q8HR, PRN
     Route: 048
     Dates: end: 20190114
  4. XOFIGO [Suspect]
     Active Substance: RADIUM RA-223 DICHLORIDE
     Indication: HORMONE-REFRACTORY PROSTATE CANCER
     Dosage: UNK
     Route: 042
     Dates: start: 20181203, end: 20181203
  5. ACETAMINOPHEN. [Concomitant]
     Active Substance: ACETAMINOPHEN
     Dosage: 650 MG, Q4HR (PRN)
     Route: 048
  6. ACETAMINOPHEN. [Concomitant]
     Active Substance: ACETAMINOPHEN
     Dosage: 650 MG, Q4HR (PRN)
     Route: 054
  7. BENZOCAINE. [Concomitant]
     Active Substance: BENZOCAINE
     Dosage: 1 DF, Q2HR (PRN)
     Dates: end: 20190114
  8. MENTHOL. [Concomitant]
     Active Substance: MENTHOL
     Dosage: 1 DF, Q2HR (PRN)
  9. FENTANYL. [Concomitant]
     Active Substance: FENTANYL
     Dosage: 55 ML, Q4HR
     Route: 042
     Dates: end: 20190114
  10. MAGNESIUM SULFATE. [Concomitant]
     Active Substance: MAGNESIUM SULFATE
     Dosage: 100 ML, PRN
     Route: 042
     Dates: end: 20190114
  11. PANTOPRAZOLE SODIUM. [Concomitant]
     Active Substance: PANTOPRAZOLE SODIUM
     Dosage: 40 MG
     Route: 042
     Dates: end: 20190114
  12. CEFEPIME HYDROCHLORIDE. [Concomitant]
     Active Substance: CEFEPIME HYDROCHLORIDE
     Dosage: 1 G, Q8HR
     Route: 042
     Dates: end: 20190114
  13. NOREPINEPHRINE BITARTRATE. [Concomitant]
     Active Substance: NOREPINEPHRINE BITARTRATE
     Dosage: 16 MG
     Route: 042
     Dates: end: 20190114
  14. SIMETHICONE (DIMETHICONE) [Concomitant]
     Active Substance: DIMETHICONE
     Dosage: 30 ML, Q4HR (PRN)
     Route: 048
  15. CALCIUM CARBONATE. [Concomitant]
     Active Substance: CALCIUM CARBONATE
     Dosage: 500 MG EVERY SIX HOURS
     Route: 042
     Dates: end: 20190114
  16. CEFEPIME HYDROCHLORIDE. [Concomitant]
     Active Substance: CEFEPIME HYDROCHLORIDE
     Dosage: 1 G, Q8HR
     Route: 042
     Dates: end: 20190114
  17. EPINEPHRINE. [Concomitant]
     Active Substance: EPINEPHRINE
     Dosage: 8 MG
     Route: 042
     Dates: end: 20190114
  18. HEPARIN SODIUM PORCINE [Concomitant]
     Active Substance: HEPARIN SODIUM
     Dosage: 500 U Q7D (PRN)
     Route: 042
     Dates: end: 20190114
  19. DEXTROMETHORPHAN [Concomitant]
     Active Substance: DEXTROMETHORPHAN
     Dosage: 10 ML, Q4HR (PRN)
     Route: 048
     Dates: end: 20190114
  20. HYDROCORTISONE. [Concomitant]
     Active Substance: HYDROCORTISONE
     Dosage: 1 APPLICATION PRN
     Route: 061
     Dates: end: 20190114
  21. HYDROXYPROPYL METHYLCELLULOSE [Concomitant]
     Active Substance: HYPROMELLOSES
     Dosage: 1 DROP, Q1HR (PRN EACH EYE)
     Dates: end: 20190114
  22. MELATONIN [Concomitant]
     Active Substance: MELATONIN
     Dosage: 3 MG BEDTIME PRN
     Route: 048
     Dates: end: 20190114
  23. MUPIROCIN. [Concomitant]
     Active Substance: MUPIROCIN
     Dosage: 1 APPLICATION, BID
     Route: 045
     Dates: end: 20190114
  24. DEXTROSE WATER [Concomitant]
     Dosage: DAILY DOSE 25 G (PRN)
     Route: 042
     Dates: end: 20190114
  25. GUAIFENESIN. [Concomitant]
     Active Substance: GUAIFENESIN
     Dosage: 10 ML, Q4HR (PRN)
     Route: 048
     Dates: start: 20190114
  26. HEPARIN SODIUM PORCINE [Concomitant]
     Active Substance: HEPARIN SODIUM
     Dosage: DAILY DOSE 500 U (PRN)
     Route: 042
  27. LORAZEPAM. [Concomitant]
     Active Substance: LORAZEPAM
     Dosage: 1 MG Q6H PRN
     Route: 042
     Dates: end: 20190114
  28. NALOXONE HYDROCHLORIDE. [Concomitant]
     Active Substance: NALOXONE HYDROCHLORIDE
     Dosage: 0.08 MG, Q2MON, PRN
     Route: 042
     Dates: end: 20190114
  29. NITROGLYCERIN. [Concomitant]
     Active Substance: NITROGLYCERIN
     Dosage: 0.4 MG, Q5M, PRN
     Dates: end: 20190114
  30. ONDANSETRON HYDROCHLORIDE. [Concomitant]
     Active Substance: ONDANSETRON HYDROCHLORIDE
     Dosage: 4 MG, Q6H, PRN
     Route: 042
  31. SODIUM CHLORIDE. [Concomitant]
     Active Substance: SODIUM CHLORIDE
     Dosage: 55 ML, Q4HR
  32. DOBUTAMINE HYDROCHLORIDE. [Concomitant]
     Active Substance: DOBUTAMINE HYDROCHLORIDE
     Dosage: 250 ML
     Dates: end: 20190114
  33. XOFIGO [Suspect]
     Active Substance: RADIUM RA-223 DICHLORIDE
     Indication: HORMONE-REFRACTORY PROSTATE CANCER
     Dosage: DAILY DOSE 79.9 MCI
     Route: 042
     Dates: start: 20190107, end: 20190107
  34. DEXMEDETOMIDINE HYDROCHLORIDE. [Concomitant]
     Active Substance: DEXMEDETOMIDINE HYDROCHLORIDE
     Dosage: 400 ?G
     Route: 042
     Dates: end: 20190114
  35. SODIUM CHLORIDE. [Concomitant]
     Active Substance: SODIUM CHLORIDE
     Dosage: 96 ML
     Dates: end: 20190114
  36. SODIUM CHLORIDE. [Concomitant]
     Active Substance: SODIUM CHLORIDE
     Dosage: 242 ML
     Dates: end: 20190114
  37. DEXTROSE. [Concomitant]
     Active Substance: DEXTROSE
     Dosage: 100 ML, PRN
     Route: 042
     Dates: end: 20190114

REACTIONS (34)
  - Mental status changes [None]
  - Blood lactic acid increased [None]
  - Hypoglycaemia [None]
  - Hyperkalaemia [None]
  - Acute respiratory failure [None]
  - Hyperphosphataemia [None]
  - Mucosal dryness [None]
  - Acute kidney injury [Not Recovered/Not Resolved]
  - Metastases to meninges [None]
  - Pancytopenia [None]
  - Body temperature decreased [None]
  - Septic shock [None]
  - Tachycardia [None]
  - Liver function test increased [None]
  - Coagulopathy [None]
  - Metastases to bone [None]
  - Livedo reticularis [None]
  - Hypotension [None]
  - Thrombocytopenia [None]
  - Hepatic ischaemia [None]
  - Hypocalcaemia [None]
  - Transaminases increased [None]
  - Abnormal loss of weight [None]
  - Haemoglobin decreased [None]
  - Pathological fracture [None]
  - Anaemia [None]
  - Prostate cancer metastatic [Fatal]
  - Tumour lysis syndrome [Not Recovered/Not Resolved]
  - Multiple organ dysfunction syndrome [None]
  - Blood urea increased [None]
  - Blood creatinine increased [None]
  - Metastases to soft tissue [None]
  - Metabolic encephalopathy [None]
  - Hyperuricaemia [None]

NARRATIVE: CASE EVENT DATE: 2018
